FAERS Safety Report 17168400 (Version 3)
Quarter: 2020Q2

REPORT INFORMATION
  Report Type: Report from Study
  Country: FR (occurrence: FR)
  Receive Date: 20191218
  Receipt Date: 20200629
  Transmission Date: 20200713
  Serious: Yes (Hospitalization, Other)
  Sender: FDA-Public Use
  Company Number: FR-ROCHE-2496749

PATIENT
  Age: 76 Year
  Sex: Male
  Weight: 75 kg

DRUGS (39)
  1. ADOPORT [Suspect]
     Active Substance: TACROLIMUS
     Route: 048
     Dates: start: 20190402, end: 20190406
  2. ADOPORT [Suspect]
     Active Substance: TACROLIMUS
     Route: 048
     Dates: start: 20190830
  3. PRAVASTATINE [PRAVASTATIN] [Concomitant]
     Active Substance: PRAVASTATIN
     Indication: PRODUCT USED FOR UNKNOWN INDICATION
     Route: 065
     Dates: start: 20190322, end: 20190408
  4. PARACETAMOL [Concomitant]
     Active Substance: ACETAMINOPHEN
     Indication: PRODUCT USED FOR UNKNOWN INDICATION
     Route: 065
     Dates: start: 20190321, end: 20190402
  5. ADOPORT [Suspect]
     Active Substance: TACROLIMUS
     Route: 048
     Dates: start: 20190601, end: 20190830
  6. NEFOPAM [Concomitant]
     Active Substance: NEFOPAM
     Indication: PRODUCT USED FOR UNKNOWN INDICATION
     Route: 065
     Dates: start: 20190327, end: 20190407
  7. CALCIPARINE [Concomitant]
     Active Substance: HEPARIN CALCIUM
     Indication: PRODUCT USED FOR UNKNOWN INDICATION
     Dosage: UNK
     Route: 065
     Dates: start: 20190325, end: 20190409
  8. ADOPORT [Suspect]
     Active Substance: TACROLIMUS
     Route: 048
     Dates: start: 20190327, end: 20190328
  9. ADOPORT [Suspect]
     Active Substance: TACROLIMUS
     Route: 048
     Dates: start: 20190321
  10. ADOPORT [Suspect]
     Active Substance: TACROLIMUS
     Route: 048
     Dates: start: 20190321
  11. ADOPORT [Suspect]
     Active Substance: TACROLIMUS
     Route: 048
     Dates: start: 20190321, end: 20190322
  12. ADOPORT [Suspect]
     Active Substance: TACROLIMUS
     Route: 048
     Dates: start: 20190322, end: 20190324
  13. SOLU-MEDROL [Suspect]
     Active Substance: METHYLPREDNISOLONE SODIUM SUCCINATE
     Indication: PROPHYLAXIS
     Route: 065
     Dates: start: 20190321, end: 20190321
  14. LANSOPRAZOLE. [Concomitant]
     Active Substance: LANSOPRAZOLE
     Indication: PRODUCT USED FOR UNKNOWN INDICATION
     Route: 065
     Dates: start: 20190322
  15. VALGANCICLOVIR. [Suspect]
     Active Substance: VALGANCICLOVIR
     Indication: PROPHYLAXIS
     Route: 065
     Dates: start: 20190322, end: 20190705
  16. ADOPORT [Suspect]
     Active Substance: TACROLIMUS
     Route: 048
     Dates: start: 20190401, end: 20190402
  17. MYFORTIC [Suspect]
     Active Substance: MYCOPHENOLATE SODIUM
     Indication: PROPHYLAXIS AGAINST TRANSPLANT REJECTION
     Dosage: UNK
     Route: 065
     Dates: start: 20190321, end: 20190406
  18. BISOPROLOL [Concomitant]
     Active Substance: BISOPROLOL
     Indication: PRODUCT USED FOR UNKNOWN INDICATION
     Route: 065
     Dates: start: 20190322
  19. ADOPORT [Suspect]
     Active Substance: TACROLIMUS
     Route: 048
     Dates: start: 20190409, end: 20190425
  20. SULFAMETHOXAZOLE/TRIMETHOPRIM [Suspect]
     Active Substance: SULFAMETHOXAZOLE\TRIMETHOPRIM
     Indication: PNEUMOCYSTIS JIROVECII PNEUMONIA
     Dosage: 400/800MG PER DAY
     Route: 065
     Dates: start: 20190328, end: 20190705
  21. CORTANCYL [Concomitant]
     Active Substance: PREDNISONE
     Indication: PRODUCT USED FOR UNKNOWN INDICATION
     Route: 065
     Dates: start: 20190323
  22. ADOPORT [Suspect]
     Active Substance: TACROLIMUS
     Indication: RENAL TRANSPLANT
     Route: 048
     Dates: start: 20190601
  23. ADOPORT [Suspect]
     Active Substance: TACROLIMUS
     Route: 048
     Dates: start: 20190321
  24. ADOPORT [Suspect]
     Active Substance: TACROLIMUS
     Route: 048
     Dates: start: 20190321
  25. ADOPORT [Suspect]
     Active Substance: TACROLIMUS
     Route: 048
     Dates: start: 20190330, end: 20190401
  26. ADOPORT [Suspect]
     Active Substance: TACROLIMUS
     Route: 048
     Dates: start: 20190324, end: 20190327
  27. SOLU-MEDROL [Suspect]
     Active Substance: METHYLPREDNISOLONE SODIUM SUCCINATE
     Route: 065
     Dates: start: 20190322, end: 20190322
  28. ADOPORT [Suspect]
     Active Substance: TACROLIMUS
     Route: 048
     Dates: start: 20190406, end: 20190409
  29. LANTUS [Concomitant]
     Active Substance: INSULIN GLARGINE
     Indication: PRODUCT USED FOR UNKNOWN INDICATION
     Dosage: UNK
     Route: 065
     Dates: start: 20190326
  30. PHLOROGLUCINOL [Concomitant]
     Active Substance: PHLOROGLUCINOL
     Indication: PRODUCT USED FOR UNKNOWN INDICATION
     Route: 065
     Dates: start: 20190321, end: 20190326
  31. ARANESP [Concomitant]
     Active Substance: DARBEPOETIN ALFA
     Indication: PRODUCT USED FOR UNKNOWN INDICATION
     Route: 065
     Dates: start: 20190322
  32. ADOPORT [Suspect]
     Active Substance: TACROLIMUS
     Route: 048
     Dates: start: 20190504, end: 20190601
  33. ADOPORT [Suspect]
     Active Substance: TACROLIMUS
     Route: 048
     Dates: start: 20190328, end: 20190330
  34. ADOPORT [Suspect]
     Active Substance: TACROLIMUS
     Route: 048
     Dates: start: 20190425, end: 20190504
  35. ADOPORT [Suspect]
     Active Substance: TACROLIMUS
     Route: 048
     Dates: start: 20190321
  36. MYFORTIC [Suspect]
     Active Substance: MYCOPHENOLATE SODIUM
     Dosage: 1080 OT
     Route: 065
     Dates: start: 20190407
  37. NOVORAPID [Concomitant]
     Active Substance: INSULIN ASPART
     Indication: PRODUCT USED FOR UNKNOWN INDICATION
     Route: 065
     Dates: start: 20190322, end: 20190424
  38. TRAMADOL. [Concomitant]
     Active Substance: TRAMADOL
     Indication: PRODUCT USED FOR UNKNOWN INDICATION
     Route: 065
     Dates: start: 20190321, end: 20190321
  39. OXYBUTYNINE [OXYBUTYNIN] [Concomitant]
     Active Substance: OXYBUTYNIN
     Indication: PRODUCT USED FOR UNKNOWN INDICATION
     Route: 065
     Dates: start: 20190321, end: 20190330

REACTIONS (16)
  - Acute kidney injury [Recovered/Resolved]
  - Chest pain [Recovered/Resolved]
  - Localised oedema [Recovered/Resolved]
  - Cough [Recovered/Resolved]
  - Atrial fibrillation [Not Recovered/Not Resolved]
  - Escherichia urinary tract infection [Recovered/Resolved]
  - Hypertension [Recovering/Resolving]
  - Abdominal pain [Recovered/Resolved]
  - Diarrhoea [Recovered/Resolved]
  - Neutropenia [Recovering/Resolving]
  - Metabolic acidosis [Not Recovered/Not Resolved]
  - Thrombocytopenia [Recovered/Resolved]
  - Hyperglycaemia [Recovering/Resolving]
  - Oedema peripheral [Not Recovered/Not Resolved]
  - Renal artery stenosis [Recovered/Resolved]
  - Bronchopulmonary aspergillosis [Recovering/Resolving]

NARRATIVE: CASE EVENT DATE: 20190321
